FAERS Safety Report 19349738 (Version 1)
Quarter: 2021Q2

REPORT INFORMATION
  Report Type: Spontaneous
  Country: FR (occurrence: FR)
  Receive Date: 20210531
  Receipt Date: 20210531
  Transmission Date: 20210717
  Serious: Yes (Hospitalization, Other)
  Sender: FDA-Public Use
  Company Number: FR-TEVA-2021-FR-1916142

PATIENT
  Sex: Male

DRUGS (2)
  1. DICLAZEPAM [Suspect]
     Active Substance: 2-CHLORODIAZEPAM
     Route: 065
     Dates: start: 202004, end: 202010
  2. ALPRAZOLAM. [Suspect]
     Active Substance: ALPRAZOLAM
     Indication: ANXIETY
     Route: 048
     Dates: start: 2019, end: 2020

REACTIONS (4)
  - Epilepsy [Recovered/Resolved]
  - Withdrawal syndrome [Recovered/Resolved]
  - Drug abuse [Recovered/Resolved]
  - Amnesia [Recovered/Resolved]

NARRATIVE: CASE EVENT DATE: 2019
